FAERS Safety Report 19430767 (Version 1)
Quarter: 2021Q2

REPORT INFORMATION
  Report Type: Spontaneous
  Country: US (occurrence: US)
  Receive Date: 20210618
  Receipt Date: 20210618
  Transmission Date: 20210717
  Serious: No
  Sender: FDA-Public Use
  Company Number: US-ROCHE-2775325

PATIENT
  Age: 82 Year
  Sex: Female
  Weight: 73 kg

DRUGS (17)
  1. ACTEMRA [Suspect]
     Active Substance: TOCILIZUMAB
     Indication: GIANT CELL ARTERITIS
     Dosage: YES
     Route: 058
     Dates: start: 20210218
  2. ATOVAQUONE. [Concomitant]
     Active Substance: ATOVAQUONE
     Route: 048
  3. SIMVASTATIN. [Concomitant]
     Active Substance: SIMVASTATIN
     Dosage: TAKE 1 TABLET (20 MG TOTAL) BY MOUTH DAILY (WITH DINNER)
     Route: 048
  4. LISINOPRIL. [Concomitant]
     Active Substance: LISINOPRIL
     Route: 048
  5. ALBUTEROL. [Concomitant]
     Active Substance: ALBUTEROL
     Indication: WHEEZING
     Dosage: (2.5 MG/3ML) 0.083% NEBULIZER SOLUTION?SIG: TAKE 3 MLS (2.5 MG TOTAL) BY NEBULIZATION EVERY 6 HOURS
  6. CHOLECALCIFEROL [Concomitant]
     Active Substance: CHOLECALCIFEROL
     Dosage: TAKE 2,000 UNITS BY MOUTH DAILY
     Route: 048
  7. LATANOPROST. [Concomitant]
     Active Substance: LATANOPROST
     Dosage: PLACE 1 DROP INTO THE LEFT EYE NIGHTLY
     Route: 047
  8. ACTEMRA [Suspect]
     Active Substance: TOCILIZUMAB
  9. TRELEGY ELLIPTA [Concomitant]
     Active Substance: FLUTICASONE FUROATE\UMECLIDINIUM BROMIDE\VILANTEROL TRIFENATATE
     Dosage: 100?62.5?25 MCG/INH DISKUS INHALE 1 PUFF INTO THE LUNGS DAILY
  10. FLUTICASONE. [Concomitant]
     Active Substance: FLUTICASONE
     Dosage: 50 MCG/ACT NASAL SPRAY?SPRAYS EACH NOSTRIL TWICE DAILY FOR 2 WEEKS, THEN ONCE DAILY.
     Route: 045
  11. OMEPRAZOLE. [Concomitant]
     Active Substance: OMEPRAZOLE
     Dosage: TAKE 1 CAPSULE (20 MG TOTAL) BY MOUTH DAILY (BEFORE BREAKFAST)
     Route: 048
  12. PREDNISONE. [Concomitant]
     Active Substance: PREDNISONE
     Route: 048
  13. ASPIRIN. [Concomitant]
     Active Substance: ASPIRIN
     Route: 048
  14. LEVOTHYROXINE. [Concomitant]
     Active Substance: LEVOTHYROXINE
     Dosage: 25 MCG?TAKE 1 TABLET BY MOUTH DAILY BEFORE BREAKFAST
     Route: 048
  15. ALENDRONATE [Concomitant]
     Active Substance: ALENDRONATE SODIUM
     Dosage: 12 TABLETS??TAKE 1 TABLET (70 MG TOTAL) BY MOUTH ONCE A WEEK TAKE WITH A FULL GLASS OF WATER. DO?NOT
     Route: 048
  16. ACTEMRA [Suspect]
     Active Substance: TOCILIZUMAB
  17. CYANOCOBALAMIN. [Concomitant]
     Active Substance: CYANOCOBALAMIN
     Dosage: 1000 MCG TABLET
     Route: 048

REACTIONS (2)
  - No adverse event [Unknown]
  - Product temperature excursion issue [Unknown]

NARRATIVE: CASE EVENT DATE: 20210218
